FAERS Safety Report 9888896 (Version 1)
Quarter: 2014Q1

REPORT INFORMATION
  Report Type: Spontaneous
  Country: US (occurrence: US)
  Receive Date: 20140211
  Receipt Date: 20140211
  Transmission Date: 20141002
  Serious: Yes (Hospitalization)
  Sender: FDA-Public Use
  Company Number: US-GLAXOSMITHKLINE-A1059652A

PATIENT
  Age: 66 Year
  Sex: Female

DRUGS (6)
  1. ADVAIR HFA [Suspect]
     Indication: ASTHMA
     Dosage: 1PUFF TWICE PER DAY
     Route: 055
  2. VENTOLIN HFA [Suspect]
     Indication: ASTHMA
     Dosage: 2PUFF AS REQUIRED
     Route: 055
  3. GABAPENTIN [Concomitant]
  4. SYNTHROID [Concomitant]
  5. TRILEPTAL [Concomitant]
  6. EFFEXOR [Concomitant]

REACTIONS (9)
  - Pulmonary thrombosis [Recovered/Resolved]
  - Lung operation [Recovered/Resolved]
  - Carpal tunnel decompression [Recovered/Resolved]
  - Knee arthroplasty [Unknown]
  - Carpal tunnel syndrome [Recovered/Resolved]
  - Arthritis [Not Recovered/Not Resolved]
  - Arthropathy [Not Recovered/Not Resolved]
  - Joint dislocation [Not Recovered/Not Resolved]
  - Arthritis [Recovered/Resolved]
